FAERS Safety Report 8271217-3 (Version None)
Quarter: 2012Q2

REPORT INFORMATION
  Report Type: 
  Country: None (occurrence: None)
  Receive Date: 20120410
  Receipt Date: 20120405
  Transmission Date: 20120825
  Serious: Yes (Life-Threatening, Hospitalization)
  Sender: FDA-Public Use
  Company Number: PHEH2012US006998

PATIENT
  Sex: Female
  Weight: 60.33 kg

DRUGS (11)
  1. ZOCOR [Concomitant]
  2. CLONIDINE [Concomitant]
  3. CARVEDILOL [Concomitant]
     Dosage: 25 MG, BID
  4. VICODIN [Concomitant]
     Dosage: HYDROCODONE BITARTRATE:5 MG, PARACETAMOL:500MG, PRN
  5. LEXAPRO [Concomitant]
     Dosage: 20 MG, QD
  6. GILENYA [Suspect]
     Indication: RELAPSING-REMITTING MULTIPLE SCLEROSIS
     Dosage: 0.5 MG, QD
     Route: 048
  7. COREG [Concomitant]
  8. ASPIRIN [Concomitant]
     Dosage: 81 MG, BID
  9. ZANAFLEX [Concomitant]
     Dosage: 2 MG, UNK
  10. DRISDOL [Concomitant]
     Dosage: 50000 U, QW
     Route: 048
  11. LISINOPRIL [Concomitant]
     Dosage: 20 MG, QD

REACTIONS (22)
  - ELECTROCARDIOGRAM ABNORMAL [None]
  - ARTERIAL STENOSIS [None]
  - CHEST PAIN [None]
  - LEFT VENTRICULAR HYPERTROPHY [None]
  - MITRAL VALVE PROLAPSE [None]
  - DEPRESSION [None]
  - DYSPEPSIA [None]
  - CARDIAC SEPTAL DEFECT [None]
  - AORTIC VALVE INCOMPETENCE [None]
  - HEADACHE [None]
  - LEFT VENTRICULAR DYSFUNCTION [None]
  - PAIN [None]
  - TROPONIN INCREASED [None]
  - HAEMOGLOBIN INCREASED [None]
  - OSTEOARTHRITIS [None]
  - VITAMIN D DEFICIENCY [None]
  - COUGH [None]
  - ACUTE MYOCARDIAL INFARCTION [None]
  - VENTRICULAR HYPOKINESIA [None]
  - BLOOD CREATINE PHOSPHOKINASE INCREASED [None]
  - HYPERTENSION [None]
  - WHITE BLOOD CELL COUNT DECREASED [None]
